FAERS Safety Report 8348851-5 (Version None)
Quarter: 2012Q2

REPORT INFORMATION
  Report Type: 
  Country: None (occurrence: None)
  Receive Date: 20120508
  Receipt Date: 20120426
  Transmission Date: 20120825
  Serious: Yes (Hospitalization)
  Sender: FDA-Public Use
  Company Number: WAES 1001USA00594

PATIENT
  Age: 48 Year
  Sex: Female
  Weight: 53.978 kg

DRUGS (4)
  1. ISENTRESS [Suspect]
     Indication: HIV INFECTION
     Dosage: 400 MG/BID/PO
     Route: 048
     Dates: start: 20090915
  2. TRAZODONE HYDROCHLORIDE [Concomitant]
  3. TRUVADA [Suspect]
     Indication: HIV INFECTION
     Dosage: 500 MG/DAILY/PO
     Route: 048
     Dates: start: 20090915
  4. COCAINE [Concomitant]

REACTIONS (8)
  - HAEMATOCRIT DECREASED [None]
  - BACK PAIN [None]
  - URINARY TRACT INFECTION [None]
  - HAEMOGLOBIN DECREASED [None]
  - UPPER RESPIRATORY TRACT INFECTION [None]
  - DEEP VEIN THROMBOSIS [None]
  - DRUG ABUSE [None]
  - LYMPHADENOPATHY [None]
